FAERS Safety Report 10682012 (Version 1)
Quarter: 2014Q4

REPORT INFORMATION
  Report Type: Spontaneous
  Country: GB (occurrence: None)
  Receive Date: 20141224
  Receipt Date: 20141224
  Transmission Date: 20150529
  Serious: Yes (Other)
  Sender: FDA-Public Use
  Company Number: CL-601-2014

PATIENT
  Age: 26 Year
  Sex: Female
  Weight: 97.3 kg

DRUGS (10)
  1. GENTAMICIN. [Concomitant]
     Active Substance: GENTAMICIN
  2. HYDROMOL EMOLLIENT(LIGHT LIQUID PARAFFIN,ISOPROPYL MYRISTATE) [Concomitant]
  3. FLUCLOXACILLIN [Concomitant]
     Active Substance: FLUCLOXACILLIN
  4. METRONIDAZOLE. [Suspect]
     Active Substance: METRONIDAZOLE
     Dates: start: 20141124
  5. ANUSOL (BENZYL BENZOATE, BISMUTH OXIDE, BISMUTH SUBGALLATE HYDROCORTISONE ACETATE, PERU BALSAM,ZINC OXIDE) [Concomitant]
  6. TRIMOVATE (CHLORTETRACYCLINE HYDROCHLORIDE,CLOBETASONE BUTYRATE,NYSTATIN, OXYTETRACYCLINE CALCIUM, OXYTETRACYCLINE DIHYDRATE [Concomitant]
  7. CETIRIZINE [Concomitant]
     Active Substance: CETIRIZINE HYDROCHLORIDE
  8. GLYCERYL TRINITRATE [Concomitant]
     Active Substance: NITROGLYCERIN
  9. CHLORPHENAMINE [Concomitant]
     Active Substance: CHLORPHENIRAMINE MALEATE
  10. MEBENDAZOLE. [Concomitant]
     Active Substance: MEBENDAZOLE

REACTIONS (3)
  - Anxiety [None]
  - Psychotic disorder [None]
  - Paranoia [None]

NARRATIVE: CASE EVENT DATE: 20141126
